FAERS Safety Report 4696644-2 (Version None)
Quarter: 2005Q2

REPORT INFORMATION
  Report Type: 
  Country: None (occurrence: None)
  Receive Date: 20050616
  Receipt Date: 20050414
  Transmission Date: 20051028
  Serious: No
  Sender: FDA-Public Use
  Company Number: BDI-007121

PATIENT
  Age: 34 Year
  Sex: Male

DRUGS (1)
  1. MULTIHANCE [Suspect]
     Indication: NUCLEAR MAGNETIC RESONANCE IMAGING
     Dosage: 20 ML ONCE IV
     Route: 042
     Dates: start: 20050412, end: 20050412

REACTIONS (5)
  - DIZZINESS [None]
  - DYSGEUSIA [None]
  - NAUSEA [None]
  - PAROSMIA [None]
  - PRURITUS [None]
